FAERS Safety Report 6952487-8 (Version None)
Quarter: 2010Q3

REPORT INFORMATION
  Report Type: 
  Country: None (occurrence: None)
  Receive Date: 20100829
  Receipt Date: 20100505
  Transmission Date: 20110219
  Serious: No
  Sender: FDA-Public Use
  Company Number: US-ABBOTT-10P-163-0643470-00

PATIENT
  Age: 79 Year
  Sex: Male

DRUGS (7)
  1. NIASPAN [Suspect]
     Indication: BLOOD TRIGLYCERIDES INCREASED
     Route: 048
     Dates: start: 20100430
  2. HUMULIN 70/30 [Concomitant]
     Indication: DIABETES MELLITUS
     Route: 058
  3. LANTUS [Concomitant]
     Indication: DIABETES MELLITUS
     Route: 058
  4. UNKNOWN MEDICATIONS [Concomitant]
     Indication: DIABETES MELLITUS
     Route: 048
  5. UNKNOWN MEDICATIONS [Concomitant]
     Indication: HYPERTENSION
  6. UNKNOWN MEDICATIONS [Concomitant]
     Indication: BLOOD CHOLESTEROL INCREASED
  7. MULTI-VITAMIN [Concomitant]
     Indication: VITAMIN SUPPLEMENTATION

REACTIONS (1)
  - BLOOD GLUCOSE INCREASED [None]
